FAERS Safety Report 18131923 (Version 1)
Quarter: 2020Q3

REPORT INFORMATION
  Report Type: Spontaneous
  Country: US (occurrence: US)
  Receive Date: 20200810
  Receipt Date: 20200810
  Transmission Date: 20201103
  Serious: Yes (Other)
  Sender: FDA-Public Use
  Company Number: US-BEAUTYAVENUES-2020-US-015272

PATIENT
  Age: 30 Year
  Sex: Female

DRUGS (2)
  1. ANTI?BACTERIAL HAND NEVER STOP DREAMING (SUGARED HONEYSUCKLE) [Suspect]
     Active Substance: ALCOHOL
     Indication: PROPHYLAXIS
     Dosage: USED ONE TIME
     Dates: start: 20200717, end: 20200717
  2. UNSPECIFIED DAILY VITAMINS [Concomitant]

REACTIONS (4)
  - Photophobia [Recovering/Resolving]
  - Foreign body in eye [Unknown]
  - Eye irritation [Recovered/Resolved]
  - Accidental exposure to product [Recovered/Resolved]

NARRATIVE: CASE EVENT DATE: 20200717
